FAERS Safety Report 8884491 (Version 2)
Quarter: 2013Q1

REPORT INFORMATION
  Report Type: Spontaneous
  Country: US (occurrence: US)
  Receive Date: 20121104
  Receipt Date: 20130122
  Transmission Date: 20140127
  Serious: No
  Sender: FDA-Public Use
  Company Number: US-009507513-1210USA011861

PATIENT
  Sex: Male

DRUGS (5)
  1. JANUMET [Suspect]
     Indication: TYPE 2 DIABETES MELLITUS
     Dosage: 50/1000 MG, BID
     Route: 048
     Dates: end: 20121022
  2. ASPIRIN [Concomitant]
  3. CYANOCOBALAMIN [Concomitant]
  4. LANTUS [Concomitant]
  5. OBESITY RESEARCH LIPOZENE [Concomitant]

REACTIONS (1)
  - Renal impairment [Unknown]
